FAERS Safety Report 4594627-4 (Version None)
Quarter: 2005Q1

REPORT INFORMATION
  Report Type: 
  Country: None (occurrence: None)
  Receive Date: 20050301
  Receipt Date: 20041108
  Transmission Date: 20050727
  Serious: No
  Sender: FDA-Public Use
  Company Number: US-BRISTOL-MYERS SQUIBB COMPANY-12759817

PATIENT
  Sex: Male

DRUGS (3)
  1. ERBITUX [Suspect]
     Indication: COLON CANCER
     Dosage: 1ST INFUSION
     Route: 042
     Dates: start: 20041026, end: 20041026
  2. DECADRON [Concomitant]
     Indication: PREMEDICATION
     Route: 042
     Dates: start: 20041026, end: 20041026
  3. ALOXI [Concomitant]
     Indication: PREMEDICATION
     Route: 042
     Dates: start: 20041026, end: 20041026

REACTIONS (1)
  - DERMATITIS ACNEIFORM [None]
